FAERS Safety Report 7907977-8 (Version None)
Quarter: 2011Q4

REPORT INFORMATION
  Report Type: 
  Country: None (occurrence: None)
  Receive Date: 20111110
  Receipt Date: 20111107
  Transmission Date: 20120403
  Serious: Yes (Hospitalization)
  Sender: FDA-Public Use
  Company Number: BR-MERCK-1111BRA00029

PATIENT
  Age: 86 Year
  Sex: Male
  Weight: 70 kg

DRUGS (10)
  1. DIPYRONE [Concomitant]
     Route: 065
  2. INVANZ [Suspect]
     Indication: POST PROCEDURAL INFECTION
     Route: 065
     Dates: start: 20111005, end: 20111027
  3. TEICOPLANIN [Concomitant]
     Route: 065
  4. CORIANDER AND INDIAN LABURNUM AND LICORICE AND SENNA AND TAMARIND [Concomitant]
     Route: 065
  5. PANTOPRAZOLE [Concomitant]
     Route: 065
  6. ENOXAPARIN SODIUM [Concomitant]
     Route: 065
  7. DIAZEPAM [Concomitant]
     Route: 065
  8. ONDANSETRON HYDROCHLORIDE [Concomitant]
     Route: 065
  9. TRAMADOL HYDROCHLORIDE [Concomitant]
     Indication: PAIN
     Route: 065
  10. NYSTATIN AND ZINC OXIDE [Concomitant]
     Route: 065

REACTIONS (2)
  - RASH [None]
  - HYPERAEMIA [None]
